FAERS Safety Report 12929147 (Version 39)
Quarter: 2020Q4

REPORT INFORMATION
  Report Type: Spontaneous
  Country: US (occurrence: US)
  Receive Date: 20161110
  Receipt Date: 20201217
  Transmission Date: 20210113
  Serious: Yes (Hospitalization, Other)
  Sender: FDA-Public Use
  Company Number: US-PFIZER INC-2016520991

PATIENT
  Age: 57 Year
  Sex: Male
  Weight: 106.5 kg

DRUGS (9)
  1. VIAGRA [Suspect]
     Active Substance: SILDENAFIL CITRATE
     Dosage: 10 MG, AS NEEDED (WHEN HE NEEDS IT)
  2. VIAGRA [Suspect]
     Active Substance: SILDENAFIL CITRATE
     Dosage: 50 MG (1/2 TABLET), AS NEEDED
     Route: 060
  3. VIAGRA [Suspect]
     Active Substance: SILDENAFIL CITRATE
     Indication: ERECTILE DYSFUNCTION
     Dosage: 100 MG, AS NEEDED
     Route: 048
  4. VIAGRA [Suspect]
     Active Substance: SILDENAFIL CITRATE
     Dosage: 100 MG, AS NEEDED
     Route: 048
  5. VIAGRA [Suspect]
     Active Substance: SILDENAFIL CITRATE
     Dosage: 50 MG, AS NEEDED
  6. VIAGRA [Suspect]
     Active Substance: SILDENAFIL CITRATE
     Dosage: UNK (ONCE EVERY OTHER WEEK)
  7. VIAGRA [Suspect]
     Active Substance: SILDENAFIL CITRATE
     Dosage: UNK
  8. VIAGRA [Suspect]
     Active Substance: SILDENAFIL CITRATE
     Dosage: UNK
  9. VIAGRA [Suspect]
     Active Substance: SILDENAFIL CITRATE
     Dosage: UNK, MONTHLY

REACTIONS (27)
  - Penile size reduced [Not Recovered/Not Resolved]
  - Thyroid hormones increased [Unknown]
  - Depression [Unknown]
  - Blood pressure increased [Unknown]
  - Upper limb fracture [Unknown]
  - Therapeutic response unexpected [Unknown]
  - Back pain [Unknown]
  - Fall [Unknown]
  - Heart rate decreased [Unknown]
  - Product use complaint [Unknown]
  - Wrong technique in product usage process [Unknown]
  - Product taste abnormal [Unknown]
  - Rotator cuff syndrome [Unknown]
  - Arthralgia [Unknown]
  - Limb injury [Unknown]
  - Hemiparesis [Unknown]
  - Therapeutic product effect variable [Not Recovered/Not Resolved]
  - Hypoacusis [Unknown]
  - Bradykinesia [Unknown]
  - Gait disturbance [Unknown]
  - Cerebrovascular accident [Recovering/Resolving]
  - Nerve compression [Unknown]
  - Dental discomfort [Unknown]
  - Therapeutic product effect incomplete [Not Recovered/Not Resolved]
  - Pain in extremity [Unknown]
  - Motor dysfunction [Unknown]
  - Product size issue [Unknown]

NARRATIVE: CASE EVENT DATE: 2014
